FAERS Safety Report 11195172 (Version 2)
Quarter: 2017Q1

REPORT INFORMATION
  Report Type: Spontaneous
  Country: US (occurrence: US)
  Receive Date: 20150617
  Receipt Date: 20170125
  Transmission Date: 20170428
  Serious: Yes (Other)
  Sender: FDA-Public Use
  Company Number: US-ELI_LILLY_AND_COMPANY-US201506004216

PATIENT
  Sex: Female
  Weight: 56.7 kg

DRUGS (4)
  1. CYMBALTA [Suspect]
     Active Substance: DULOXETINE HYDROCHLORIDE
     Indication: PRODUCT USED FOR UNKNOWN INDICATION
     Dosage: UNK, UNKNOWN
     Route: 065
  2. GRALISE [Concomitant]
     Active Substance: GABAPENTIN
     Indication: PRODUCT USED FOR UNKNOWN INDICATION
     Dosage: 1800 MG, EACH EVENING
     Route: 065
  3. XANAX [Concomitant]
     Active Substance: ALPRAZOLAM
     Indication: SLEEP DISORDER
     Dosage: UNK, UNKNOWN
     Route: 065
  4. SOMA [Concomitant]
     Active Substance: CARISOPRODOL
     Indication: PRODUCT USED FOR UNKNOWN INDICATION
     Dosage: 350 MG, OTHER
     Route: 065

REACTIONS (21)
  - Mood swings [Unknown]
  - Paranoia [Unknown]
  - Agitation [Unknown]
  - Irritability [Unknown]
  - Hypomania [Unknown]
  - Nightmare [Unknown]
  - Anxiety [Unknown]
  - Lethargy [Unknown]
  - Diarrhoea [Unknown]
  - Insomnia [Unknown]
  - Drug withdrawal syndrome [Unknown]
  - Dysphoria [Unknown]
  - Nervousness [Unknown]
  - Vomiting [Unknown]
  - Nausea [Unknown]
  - Fatigue [Unknown]
  - Panic attack [Unknown]
  - Vertigo [Unknown]
  - Hyperhidrosis [Unknown]
  - Depression [Unknown]
  - Confusional state [Unknown]
